FAERS Safety Report 5689159-6 (Version None)
Quarter: 2008Q1

REPORT INFORMATION
  Report Type: 
  Country: None (occurrence: None)
  Receive Date: 20080331
  Receipt Date: 20080320
  Transmission Date: 20080703
  Serious: Yes (Other)
  Sender: FDA-Public Use
  Company Number: US-WYE-H03235808

PATIENT
  Age: 30 Year
  Sex: Female

DRUGS (3)
  1. ROBITUSSIN COUGH LONG ACTING [Suspect]
     Indication: COUGH
     Dosage: APPROXIMATELY 24 OUNCES DAILY
     Route: 048
     Dates: start: 20000101
  2. ROBITUSSIN COUGH LONG ACTING [Suspect]
     Indication: DRUG ABUSE
     Dosage: AT WORST, TAKING 36 OUNCES DAILY
     Route: 048
  3. ROBITUSSIN COUGH LONG ACTING [Suspect]
     Dosage: APPROXIMATELY 24 OUNCES DAILY
     Route: 048

REACTIONS (3)
  - DRUG ABUSE [None]
  - DRUG DEPENDENCE [None]
  - OVERDOSE [None]
